FAERS Safety Report 4505123-4 (Version None)
Quarter: 2004Q4

REPORT INFORMATION
  Report Type: 
  Country: None (occurrence: None)
  Receive Date: 20041013
  Receipt Date: 20040512
  Transmission Date: 20050328
  Serious: Yes (Other)
  Sender: FDA-Public Use
  Company Number: US-JNJFOC-20040506688

PATIENT
  Age: 59 Year
  Sex: Male

DRUGS (1)
  1. TYLENOL W/ CODEINE NO. 4 [Suspect]

REACTIONS (2)
  - DRUG ABUSER [None]
  - DRUG DEPENDENCE [None]
